FAERS Safety Report 17679732 (Version 5)
Quarter: 2020Q3

REPORT INFORMATION
  Report Type: Spontaneous
  Country: US (occurrence: US)
  Receive Date: 20200417
  Receipt Date: 20200710
  Transmission Date: 20201102
  Serious: Yes (Other)
  Sender: FDA-Public Use
  Company Number: US-SA-2020SA098857

PATIENT

DRUGS (1)
  1. LANTUS SOLOSTAR [Suspect]
     Active Substance: INSULIN GLARGINE
     Indication: TYPE 1 DIABETES MELLITUS
     Dosage: (13?14 UNITS), QD
     Route: 065
     Dates: start: 20200102

REACTIONS (2)
  - Therapeutic product effect decreased [Recovering/Resolving]
  - Diabetes mellitus inadequate control [Recovering/Resolving]
